FAERS Safety Report 19464730 (Version 2)
Quarter: 2021Q2

REPORT INFORMATION
  Report Type: Spontaneous
  Country: US (occurrence: US)
  Receive Date: 20210626
  Receipt Date: 20210626
  Transmission Date: 20210717
  Serious: No
  Sender: FDA-Public Use
  Company Number: US-JNJFOC-20210644306

PATIENT
  Age: 83 Year
  Sex: Female
  Weight: 90.8 kg

DRUGS (9)
  1. TREPROSTINIL. [Suspect]
     Active Substance: TREPROSTINIL
     Route: 048
  2. TREPROSTINIL. [Suspect]
     Active Substance: TREPROSTINIL
     Route: 048
  3. ORENITRAM [Suspect]
     Active Substance: TREPROSTINIL
     Indication: PULMONARY ARTERIAL HYPERTENSION
     Route: 048
  4. TADALAFIL. [Concomitant]
     Active Substance: TADALAFIL
     Indication: PRODUCT USED FOR UNKNOWN INDICATION
     Route: 065
  5. TREPROSTINIL. [Suspect]
     Active Substance: TREPROSTINIL
     Indication: PULMONARY ARTERIAL HYPERTENSION
     Route: 048
     Dates: start: 20181218
  6. TREPROSTINIL. [Suspect]
     Active Substance: TREPROSTINIL
     Route: 048
  7. ORENITRAM [Suspect]
     Active Substance: TREPROSTINIL
     Route: 048
  8. IMODIUM [Suspect]
     Active Substance: LOPERAMIDE HYDROCHLORIDE
     Indication: DIARRHOEA
     Route: 048
  9. ORENITRAM [Suspect]
     Active Substance: TREPROSTINIL
     Route: 048

REACTIONS (5)
  - Headache [Unknown]
  - Frequent bowel movements [Recovered/Resolved]
  - Diarrhoea [Unknown]
  - Faeces soft [Recovered/Resolved]
  - Constipation [Unknown]

NARRATIVE: CASE EVENT DATE: 20210511
